FAERS Safety Report 7218059-5 (Version None)
Quarter: 2011Q1

REPORT INFORMATION
  Report Type: 
  Country: None (occurrence: None)
  Receive Date: 20110110
  Receipt Date: 20101229
  Transmission Date: 20110831
  Serious: Yes (Hospitalization, Other)
  Sender: FDA-Public Use
  Company Number: US-ELI_LILLY_AND_COMPANY-US201009001844

PATIENT
  Sex: Female

DRUGS (25)
  1. NEXIUM [Concomitant]
  2. AMITRIPTYLINE [Concomitant]
  3. DIOVAN [Concomitant]
  4. EVISTA [Concomitant]
  5. GEMFIBROZIL [Concomitant]
  6. FORTEO [Suspect]
     Dosage: 20 UG, DAILY (1/D)
     Dates: end: 20101213
  7. RANITIDINE [Concomitant]
  8. ULTRAM [Concomitant]
  9. MAGNESIUM [Concomitant]
  10. LYSINE [Concomitant]
  11. TOPROL-XL [Concomitant]
  12. FUROSEMIDE [Concomitant]
  13. CALCIUM [Concomitant]
  14. ZINC [Concomitant]
  15. CLARITIN [Concomitant]
  16. ZANAFLEX [Concomitant]
  17. ROBINUL [Concomitant]
  18. FORTEO [Suspect]
     Indication: BONE DISORDER
     Dosage: 20 UG, DAILY (1/D)
     Dates: start: 20100829
  19. FORTICAL /00371903/ [Concomitant]
  20. MULTI-VITAMIN [Concomitant]
  21. DURAGESIC-50 [Concomitant]
  22. SIMETHICONE [Concomitant]
  23. LYRICA [Concomitant]
  24. ACETAMINOPHEN [Concomitant]
  25. PAXIL [Concomitant]

REACTIONS (6)
  - SYNCOPE [None]
  - ARTHRITIS [None]
  - NAUSEA [None]
  - HOSPITALISATION [None]
  - GROIN PAIN [None]
  - FALL [None]
